FAERS Safety Report 5628770-5 (Version None)
Quarter: 2008Q1

REPORT INFORMATION
  Report Type: 
  Country: None (occurrence: None)
  Receive Date: 20080215
  Receipt Date: 20080204
  Transmission Date: 20080703
  Serious: Yes (Other)
  Sender: FDA-Public Use
  Company Number: GB-PFIZER INC-2008012529

PATIENT
  Age: 49 Year
  Sex: Male

DRUGS (1)
  1. CHANTIX [Suspect]
     Indication: SMOKING CESSATION THERAPY
     Route: 048
     Dates: start: 20071223, end: 20071231

REACTIONS (4)
  - ANXIETY [None]
  - FEELING OF DESPAIR [None]
  - PANIC DISORDER [None]
  - SUICIDAL IDEATION [None]
